FAERS Safety Report 13421763 (Version 1)
Quarter: 2017Q2

REPORT INFORMATION
  Report Type: Spontaneous
  Country: US (occurrence: US)
  Receive Date: 20170410
  Receipt Date: 20170410
  Transmission Date: 20170830
  Serious: Yes (Other)
  Sender: FDA-Public Use
  Company Number: US-JNJCP-30000378650

PATIENT
  Sex: Female
  Weight: 50 kg

DRUGS (4)
  1. ALFALFA [Concomitant]
     Active Substance: ALFALFA
     Indication: NUTRITIONAL SUPPLEMENTATION
     Dosage: 1 A DAY SINCE 20 YEARS
  2. NEUTROGENA TRIPLE AGE REPAIR MOISTURIZER NIGHT [Suspect]
     Active Substance: COSMETICS
     Indication: DRY SKIN PROPHYLAXIS
     Dosage: HALF TABLE SPOON 2X A NIGHT
     Route: 061
     Dates: start: 20161225, end: 20170210
  3. NEUTROGENA TRIPLE AGE REPAIR MOISTURIZER BROAD SPECTRUM SPF25 [Suspect]
     Active Substance: AVOBENZONE\HOMOSALATE\OCTISALATE\OCTOCRYLENE
     Indication: DRY SKIN PROPHYLAXIS
     Dosage: HALF TABLE SPOON (DIRECTIONS ON BOX) THRICE A DAY
     Route: 061
     Dates: start: 20161225, end: 20170210
  4. MULTI-VITAMIN [Concomitant]
     Active Substance: .ALPHA.-TOCOPHEROL ACETATE, DL-\ASCORBIC ACID\CYANOCOBALAMIN\FLUORIDE ION\FOLIC ACID\NIACIN\PYRIDOXINE\RIBOFLAVIN\THIAMINE\VITAMIN A\VITAMIN D
     Indication: VITAMIN SUPPLEMENTATION
     Dosage: 1 A DAY SINCE 10 YEARS

REACTIONS (4)
  - Application site reaction [Not Recovered/Not Resolved]
  - Suicidal ideation [Not Recovered/Not Resolved]
  - Product expiration date issue [Unknown]
  - Skin wrinkling [Not Recovered/Not Resolved]

NARRATIVE: CASE EVENT DATE: 20161225
